FAERS Safety Report 23043478 (Version 2)
Quarter: 2023Q4

REPORT INFORMATION
  Report Type: Spontaneous
  Country: US (occurrence: US)
  Receive Date: 20231009
  Receipt Date: 20231130
  Transmission Date: 20240110
  Serious: Yes (Other)
  Sender: FDA-Public Use
  Company Number: US-Ipsen Biopharmaceuticals, Inc.-2023-23107

PATIENT
  Age: 18 Year
  Sex: Male
  Weight: 74 kg

DRUGS (19)
  1. TAZVERIK [Suspect]
     Active Substance: TAZEMETOSTAT HYDROBROMIDE
     Indication: Neoplasm malignant
     Route: 048
     Dates: start: 20230901
  2. TAZVERIK [Suspect]
     Active Substance: TAZEMETOSTAT HYDROBROMIDE
     Indication: Off label use
  3. AMLODIPINE [Concomitant]
     Active Substance: AMLODIPINE BESYLATE
  4. LIDODERM [Concomitant]
     Active Substance: LIDOCAINE
  5. MARINOL [Concomitant]
     Active Substance: DRONABINOL
  6. MIRALAX [Concomitant]
     Active Substance: POLYETHYLENE GLYCOL 3350
  7. MORPHINE SULFATE [Concomitant]
     Active Substance: MORPHINE SULFATE
  8. NEURONTIN [Concomitant]
     Active Substance: GABAPENTIN
  9. ONDANSETRON [Concomitant]
     Active Substance: ONDANSETRON
  10. OXYCODONE [Concomitant]
     Active Substance: OXYCODONE
  11. ACETAMINOPHEN [Concomitant]
     Active Substance: ACETAMINOPHEN
  12. PHOSPHORUS [Concomitant]
     Active Substance: PHOSPHORUS
  13. REGLAN [Concomitant]
     Active Substance: METOCLOPRAMIDE HYDROCHLORIDE
  14. METHOCARBAMOL [Concomitant]
     Active Substance: METHOCARBAMOL
  15. SCOPOLAMINE [Concomitant]
     Active Substance: SCOPOLAMINE
  16. SENOKOT [Concomitant]
     Active Substance: SENNOSIDES
  17. TYLENOL [Concomitant]
     Active Substance: ACETAMINOPHEN
  18. VOLTAREN [Concomitant]
     Active Substance: DICLOFENAC SODIUM
  19. ZYRTEC [Concomitant]
     Active Substance: CETIRIZINE HYDROCHLORIDE

REACTIONS (3)
  - Malignant neoplasm progression [Unknown]
  - Vomiting [Unknown]
  - Off label use [Unknown]
